FAERS Safety Report 8435449-3 (Version None)
Quarter: 2012Q2

REPORT INFORMATION
  Report Type: 
  Country: None (occurrence: None)
  Receive Date: 20120614
  Receipt Date: 20120606
  Transmission Date: 20120825
  Serious: Yes (Other)
  Sender: FDA-Public Use
  Company Number: US-BAYER-2012-043759

PATIENT
  Age: 31 Year
  Sex: Female
  Weight: 97.506 kg

DRUGS (11)
  1. YASMIN [Suspect]
     Indication: CONTRACEPTION
     Dosage: UNK
     Dates: start: 20020218, end: 20101001
  2. VALACICLOVIR [Concomitant]
     Dosage: 500 MG, UNK
     Route: 048
     Dates: start: 20110722
  3. METRONIDAZOLE [Concomitant]
     Dosage: 500 MG, UNK
     Route: 048
     Dates: start: 20110608
  4. TOPAMAX [Concomitant]
     Dosage: 50 MG, UNK
     Route: 048
     Dates: start: 20110928
  5. EXCEDRIN (MIGRAINE) [Concomitant]
     Dosage: UNK
     Dates: start: 19980101
  6. YAZ [Suspect]
     Indication: HORMONE THERAPY
  7. SPIRONOLACTONE [Concomitant]
     Dosage: 200 MG, UNK
     Route: 048
     Dates: start: 20090506, end: 20120209
  8. NAPROXEN (ALEVE) [Concomitant]
     Dosage: UNK
     Dates: start: 19980101
  9. YASMIN [Suspect]
     Indication: HORMONE THERAPY
  10. YAZ [Suspect]
     Indication: CONTRACEPTION
     Dosage: UNK
     Dates: start: 20020218, end: 20101001
  11. CETIRIZINE [Concomitant]
     Dosage: 10 MG, UNK
     Route: 048
     Dates: start: 20110823

REACTIONS (5)
  - EMOTIONAL DISTRESS [None]
  - PAIN [None]
  - CHOLECYSTITIS CHRONIC [None]
  - GALLBLADDER DISORDER [None]
  - INJURY [None]
